FAERS Safety Report 10545424 (Version 1)
Quarter: 2014Q4

REPORT INFORMATION
  Report Type: Spontaneous
  Country: US (occurrence: US)
  Receive Date: 20141027
  Receipt Date: 20141027
  Transmission Date: 20150529
  Serious: Yes (Hospitalization)
  Sender: FDA-Public Use
  Company Number: US-TEVA-517236USA

PATIENT
  Age: 83 Year
  Sex: Male

DRUGS (5)
  1. EPTIFIBATIDE [Concomitant]
     Active Substance: EPTIFIBATIDE
  2. ASPIRIN. [Concomitant]
     Active Substance: ASPIRIN
     Dosage: 325MG GREATER THAN 90 MINUTES PRIOR TO ANGIOGRAPHY
     Route: 065
  3. BIVALIRUDIN [Concomitant]
     Active Substance: BIVALIRUDIN
     Indication: ANTICOAGULANT THERAPY
     Route: 065
  4. CLOPIDOGREL [Suspect]
     Active Substance: CLOPIDOGREL BISULFATE
     Indication: ANTICOAGULANT THERAPY
     Dosage: GENERIC
     Route: 065
  5. LANSOPRAZOLE. [Concomitant]
     Active Substance: LANSOPRAZOLE
     Route: 065

REACTIONS (3)
  - Product substitution issue [Recovered/Resolved]
  - Thrombosis in device [Recovered/Resolved]
  - Acute myocardial infarction [Recovered/Resolved]
